FAERS Safety Report 5741098-8 (Version None)
Quarter: 2008Q2

REPORT INFORMATION
  Report Type: 
  Country: None (occurrence: None)
  Receive Date: 20080514
  Receipt Date: 20080507
  Transmission Date: 20081010
  Serious: Yes (Other)
  Sender: FDA-Public Use
  Company Number: CHPA2008US07869

PATIENT
  Sex: Male

DRUGS (4)
  1. MAALOX ANTACID/ANTIGAS RS LIQ SMTHCHERRY [Suspect]
     Indication: STOMACH DISCOMFORT
     Dosage: ORAL
     Route: 048
     Dates: start: 19980101
  2. NEXIUM [Concomitant]
  3. DRUG THERAPY NOS (DRUG THERAPY NOS) [Concomitant]
  4. ANALGESICS (NO INGREDIENTS/SUBSTANCES) [Concomitant]

REACTIONS (4)
  - EMPHYSEMA [None]
  - PAIN [None]
  - PLEURAL EFFUSION [None]
  - SPINAL FUSION SURGERY [None]
